FAERS Safety Report 9636052 (Version 1)
Quarter: 2013Q4

REPORT INFORMATION
  Report Type: Report from Study
  Country: MX (occurrence: MX)
  Receive Date: 20131021
  Receipt Date: 20131021
  Transmission Date: 20140711
  Serious: Yes (Other)
  Sender: FDA-Public Use
  Company Number: PHHY2013MX118271

PATIENT
  Age: 67 Year
  Sex: Female

DRUGS (5)
  1. CO-DIOVAN [Suspect]
     Indication: HYPERTENSION
     Dosage: UNK UKN, (320/25 MG)
     Route: 048
     Dates: start: 2008, end: 201306
  2. GALVUS MET [Suspect]
     Dosage: UNK UKN, (850/50 MG)
     Dates: start: 2012, end: 201306
  3. NOVOTIRAL [Concomitant]
     Indication: THYROID DISORDER
     Dosage: UNK UKN, UNK
     Dates: start: 2005
  4. ALDACTONE [Concomitant]
     Indication: POLYURIA
     Dosage: UNK UKN, UNK
     Dates: start: 201302
  5. INDERALICI [Concomitant]
     Indication: POLYURIA
     Dosage: UNK UKN, UNK
     Dates: start: 201302

REACTIONS (1)
  - Hepatitis C [Unknown]
